FAERS Safety Report 14521137 (Version 1)
Quarter: 2018Q1

REPORT INFORMATION
  Report Type: Spontaneous
  Country: None (occurrence: IE)
  Receive Date: 20180212
  Receipt Date: 20180212
  Transmission Date: 20180509
  Serious: Yes (Other)
  Sender: FDA-Public Use
  Company Number: IE-LABORATOIRE HRA PHARMA-2041813

PATIENT
  Age: 5 Month
  Sex: Female

DRUGS (1)
  1. ELLA [Suspect]
     Active Substance: ULIPRISTAL ACETATE
     Indication: EXPOSURE VIA BREAST MILK
     Route: 063

REACTIONS (7)
  - Crying [Recovering/Resolving]
  - Maternal exposure during breast feeding [Recovering/Resolving]
  - Hypersomnia [Recovering/Resolving]
  - Off label use [Recovering/Resolving]
  - Agitation [Recovering/Resolving]
  - Pain [Recovering/Resolving]
  - Somnolence [Recovering/Resolving]

NARRATIVE: CASE EVENT DATE: 20171223
